FAERS Safety Report 8276542-8 (Version None)
Quarter: 2012Q2

REPORT INFORMATION
  Report Type: 
  Country: None (occurrence: None)
  Receive Date: 20120412
  Receipt Date: 20120410
  Transmission Date: 20120825
  Serious: No
  Sender: FDA-Public Use
  Company Number: US-PFIZER INC-2012089812

PATIENT
  Sex: Female
  Weight: 116 kg

DRUGS (5)
  1. METFORMIN [Concomitant]
     Indication: DIABETES MELLITUS
     Dosage: UNK
  2. ALTACE [Suspect]
     Indication: HYPERTENSION
     Dosage: UNK
  3. RAMIPRIL [Suspect]
     Indication: HYPERTENSION
     Dosage: 5 MG, 2X/DAY
     Route: 048
     Dates: start: 20110101
  4. DETROL [Concomitant]
     Indication: STRESS URINARY INCONTINENCE
     Dosage: UNK
  5. TOVIAZ [Concomitant]
     Indication: STRESS URINARY INCONTINENCE
     Dosage: UNK

REACTIONS (1)
  - HEADACHE [None]
